FAERS Safety Report 6834474-3 (Version None)
Quarter: 2010Q3

REPORT INFORMATION
  Report Type: 
  Country: None (occurrence: None)
  Receive Date: 20100712
  Receipt Date: 20070713
  Transmission Date: 20110219
  Serious: No
  Sender: FDA-Public Use
  Company Number: US-PFIZER INC-2007032911

PATIENT
  Sex: Female
  Weight: 49 kg

DRUGS (2)
  1. CHANTIX [Suspect]
     Indication: SMOKING CESSATION THERAPY
     Route: 048
     Dates: start: 20070416, end: 20070420
  2. ORAL CONTRACEPTIVE NOS [Concomitant]

REACTIONS (7)
  - DYSGEUSIA [None]
  - DYSPNOEA [None]
  - MIDDLE INSOMNIA [None]
  - NERVOUSNESS [None]
  - NIGHTMARE [None]
  - SOMNAMBULISM [None]
  - TREMOR [None]
